FAERS Safety Report 9375420 (Version 1)
Quarter: 2013Q2

REPORT INFORMATION
  Report Type: Spontaneous
  Country: US (occurrence: US)
  Receive Date: 20130628
  Receipt Date: 20130628
  Transmission Date: 20140414
  Serious: Yes (Hospitalization)
  Sender: FDA-Public Use
  Company Number: US-GLAXOSMITHKLINE-A0807527A

PATIENT
  Age: 35 Year
  Sex: Male

DRUGS (5)
  1. AVANDIA [Suspect]
     Indication: TYPE 2 DIABETES MELLITUS
     Dosage: 2MG TWICE PER DAY
     Route: 048
     Dates: start: 200501, end: 200701
  2. AVANDAMET [Suspect]
     Indication: DIABETES MELLITUS
     Route: 048
     Dates: start: 20041209
  3. OMEGA 3 FATTY ACIDS [Concomitant]
  4. VYTORIN [Concomitant]
  5. TRICOR [Concomitant]

REACTIONS (2)
  - Myocardial infarction [Unknown]
  - Injury [Unknown]
